FAERS Safety Report 7768072-4 (Version None)
Quarter: 2011Q3

REPORT INFORMATION
  Report Type: 
  Country: None (occurrence: None)
  Receive Date: 20110922
  Receipt Date: 20110915
  Transmission Date: 20111222
  Serious: Yes (Other)
  Sender: FDA-Public Use
  Company Number: GB-SANOFI-AVENTIS-2011SA036124

PATIENT
  Sex: Female
  Weight: 90 kg

DRUGS (8)
  1. AUTOPEN 24 [Suspect]
  2. HUMALOG [Concomitant]
  3. SIMVASTATIN [Concomitant]
  4. AMOXICILLIN [Concomitant]
     Dosage: 500 MG CAPSULES
  5. AUTOPEN 24 [Suspect]
     Dates: end: 20110603
  6. NOVORAPID [Suspect]
     Indication: TYPE 1 DIABETES MELLITUS
     Dates: end: 20110501
  7. LANTUS [Suspect]
     Dates: end: 20110603
  8. LANTUS [Suspect]

REACTIONS (6)
  - WEIGHT INCREASED [None]
  - FALL [None]
  - BLOOD GLUCOSE INCREASED [None]
  - HYPOGLYCAEMIA [None]
  - WEIGHT DECREASED [None]
  - DEPRESSED MOOD [None]
